FAERS Safety Report 22084462 (Version 1)
Quarter: 2023Q1

REPORT INFORMATION
  Report Type: Spontaneous
  Country: US (occurrence: US)
  Receive Date: 20230310
  Receipt Date: 20230310
  Transmission Date: 20230418
  Serious: No
  Sender: FDA-Public Use
  Company Number: US-MYLANLABS-2023M1024017

PATIENT
  Sex: Female

DRUGS (1)
  1. CLOBETASOL PROPIONATE [Suspect]
     Active Substance: CLOBETASOL PROPIONATE
     Indication: Rash
     Dosage: UNK
     Route: 061

REACTIONS (2)
  - Expired product administered [Unknown]
  - Off label use [Unknown]
